FAERS Safety Report 7671174-4 (Version None)
Quarter: 2011Q3

REPORT INFORMATION
  Report Type: 
  Country: None (occurrence: None)
  Receive Date: 20110809
  Receipt Date: 20110727
  Transmission Date: 20111222
  Serious: Yes (Other)
  Sender: FDA-Public Use
  Company Number: US-UCBSA-037892

PATIENT
  Age: 62 Year
  Sex: Female
  Weight: 54 kg

DRUGS (26)
  1. VIMPAT [Suspect]
     Indication: DRUG THERAPY CHANGED
     Dosage: DAILY DOSE : 100MG
     Route: 048
     Dates: start: 20100820, end: 20100902
  2. LEVETIRACETAM [Concomitant]
     Route: 048
     Dates: start: 20100924, end: 20100924
  3. LEVETIRACETAM [Concomitant]
     Route: 048
     Dates: start: 20100827, end: 20100909
  4. MIRTAZAPINE [Concomitant]
     Route: 048
     Dates: start: 20100802
  5. VIMPAT [Suspect]
     Dosage: DAILY DOSE : 200MG
     Route: 048
     Dates: start: 20100903, end: 20101220
  6. VIMPAT [Suspect]
     Indication: COMPLEX PARTIAL SEIZURES
     Dosage: DAILY DOSE : 100MG
     Route: 048
     Dates: start: 20100820, end: 20100902
  7. LEVETIRACETAM [Concomitant]
     Route: 048
     Dates: start: 20100601, end: 20100819
  8. MIRTAZAPINE [Concomitant]
     Indication: DEPRESSION
     Route: 048
     Dates: start: 20100528, end: 20100801
  9. CARBAMAZEPINE [Concomitant]
  10. PHENYTOIN [Concomitant]
  11. VIMPAT [Suspect]
     Indication: CONVULSION
     Dosage: DAILY DOSE : 100MG
     Route: 048
     Dates: start: 20100820, end: 20100902
  12. LEVETIRACETAM [Concomitant]
     Indication: DRUG THERAPY CHANGED
     Route: 048
     Dates: start: 20010601, end: 20100531
  13. LISINOPRIL [Concomitant]
     Indication: HYPERTENSION
     Dosage: 80MG DAILY
     Route: 048
  14. VIMPAT [Suspect]
     Dosage: DAILY DOSE : 200MG
     Route: 048
     Dates: start: 20100903, end: 20101220
  15. VIMPAT [Suspect]
     Dosage: DAILY DOSE : 200MG
     Route: 048
     Dates: start: 20100903, end: 20101220
  16. LEVETIRACETAM [Concomitant]
     Route: 048
     Dates: start: 20100820, end: 20100826
  17. LEVETIRACETAM [Concomitant]
     Route: 048
     Dates: start: 20100910, end: 20100923
  18. LEVETIRACETAM [Concomitant]
     Route: 048
     Dates: start: 20100924, end: 20100924
  19. LAMOTRIGINE [Concomitant]
     Indication: CONVULSION
     Route: 048
     Dates: start: 20030601
  20. LEVETIRACETAM [Concomitant]
     Indication: COMPLEX PARTIAL SEIZURES
     Route: 048
     Dates: start: 20010601, end: 20100531
  21. LEVETIRACETAM [Concomitant]
     Route: 048
     Dates: start: 20100601, end: 20100819
  22. LEVETIRACETAM [Concomitant]
     Route: 048
     Dates: start: 20100827, end: 20100909
  23. LEVETIRACETAM [Concomitant]
     Route: 048
     Dates: start: 20100910, end: 20100923
  24. CITALOPRAM HYDROBROMIDE [Concomitant]
     Indication: MAJOR DEPRESSION
  25. LEVETIRACETAM [Concomitant]
     Route: 048
     Dates: start: 20100820, end: 20100826
  26. DIVALPROEX SODIUM [Concomitant]

REACTIONS (2)
  - DIZZINESS [None]
  - CHEST PAIN [None]
